FAERS Safety Report 4408519-4 (Version None)
Quarter: 2004Q3

REPORT INFORMATION
  Report Type: 
  Country: None (occurrence: None)
  Receive Date: 20040726
  Receipt Date: 20040726
  Transmission Date: 20050211
  Serious: Yes (Hospitalization)
  Sender: FDA-Public Use
  Company Number: None

PATIENT
  Age: 53 Year
  Sex: Male
  Weight: 75.2971 kg

DRUGS (1)
  1. ETHYOL [Suspect]
     Indication: TONGUE NEOPLASM MALIGNANT STAGE UNSPECIFIED
     Dosage: 500 MG SQ QD
     Dates: start: 20040614, end: 20040707

REACTIONS (3)
  - DEHYDRATION [None]
  - LABORATORY TEST ABNORMAL [None]
  - PYREXIA [None]
